FAERS Safety Report 9734222 (Version 1)
Quarter: 2013Q4

REPORT INFORMATION
  Report Type: Spontaneous
  Country: US (occurrence: US)
  Receive Date: 20131205
  Receipt Date: 20131205
  Transmission Date: 20140711
  Serious: No
  Sender: FDA-Public Use
  Company Number: US-GILEAD-2013-0089239

PATIENT
  Sex: Female

DRUGS (7)
  1. LETAIRIS [Suspect]
     Indication: PRODUCT USED FOR UNKNOWN INDICATION
     Dosage: 10 MG, QD
     Route: 048
     Dates: start: 20120418
  2. REMODULIN [Concomitant]
  3. SILDENAFIL [Concomitant]
  4. COUMADIN                           /00014802/ [Concomitant]
  5. SPIRONOLACTONE [Concomitant]
  6. PREDNISONE [Concomitant]
  7. LEFLUNOMIDE [Concomitant]

REACTIONS (4)
  - Productive cough [Unknown]
  - Nasal dryness [Unknown]
  - Nasal discomfort [Unknown]
  - Dyspnoea [Unknown]
